FAERS Safety Report 6250088-0 (Version None)
Quarter: 2009Q2

REPORT INFORMATION
  Report Type: 
  Country: None (occurrence: None)
  Receive Date: 20090629
  Receipt Date: 20090616
  Transmission Date: 20091009
  Serious: Yes (Other)
  Sender: FDA-Public Use
  Company Number: GB-AMGEN-US351543

PATIENT
  Age: 61 Year
  Sex: Female
  Weight: 50 kg

DRUGS (7)
  1. ENBREL [Suspect]
     Indication: RHEUMATOID ARTHRITIS
     Route: 058
     Dates: start: 20080601
  2. LEFLUNOMIDE [Suspect]
     Route: 048
     Dates: start: 20080601
  3. ACETAMINOPHEN W/ CODEINE [Concomitant]
     Dosage: AS REQUIRED
     Route: 065
  4. IPRATROPIUM BROMIDE [Concomitant]
     Dosage: UNKNOWN
     Route: 055
  5. ALENDRONATE SODIUM [Concomitant]
     Dosage: UNKNOWN
     Route: 065
  6. ALBUTEROL [Concomitant]
     Dosage: UNKNOWN
     Route: 055
  7. DICLOFENAC [Concomitant]
     Dosage: UNKNOWN
     Route: 065

REACTIONS (2)
  - BLOOD CREATININE INCREASED [None]
  - TUBULOINTERSTITIAL NEPHRITIS [None]
